FAERS Safety Report 8428577-X (Version None)
Quarter: 2012Q2

REPORT INFORMATION
  Report Type: 
  Country: None (occurrence: None)
  Receive Date: 20120605
  Receipt Date: 20120530
  Transmission Date: 20120825
  Serious: Yes (Other)
  Sender: FDA-Public Use
  Company Number: USA/USA/12/0024510

PATIENT
  Age: 36 Year
  Sex: Male
  Weight: 72.5755 kg

DRUGS (3)
  1. GRAPESEED EXTRACT (VITIS VINIFERA SEED) [Concomitant]
  2. CIPROFLOXACIN [Suspect]
     Indication: URINARY TRACT INFECTION
     Dosage: 500 MG, 2 IN 1 D, ORAL
     Route: 048
     Dates: start: 20120520, end: 20120529
  3. GOLDENSEAL (HYDRASTIS CANADENSIS) [Concomitant]

REACTIONS (5)
  - GAIT DISTURBANCE [None]
  - HEADACHE [None]
  - TENDON PAIN [None]
  - EYE PAIN [None]
  - VISUAL IMPAIRMENT [None]
